FAERS Safety Report 6412886-X (Version None)
Quarter: 2009Q4

REPORT INFORMATION
  Report Type: 
  Country: None (occurrence: None)
  Receive Date: 20091023
  Receipt Date: 20091014
  Transmission Date: 20100525
  Serious: Yes (Other)
  Sender: FDA-Public Use
  Company Number: PHHY2009JP45024

PATIENT
  Age: 52 Year
  Sex: Male

DRUGS (2)
  1. CYCLOSPORINE [Suspect]
     Indication: STEM CELL TRANSPLANT
  2. METHOTREXATE [Concomitant]
     Indication: STEM CELL TRANSPLANT

REACTIONS (3)
  - HEPATIC ARTERY OCCLUSION [None]
  - OESOPHAGEAL CARCINOMA [None]
  - THROMBOTIC MICROANGIOPATHY [None]
